FAERS Safety Report 5856397-9 (Version None)
Quarter: 2008Q3

REPORT INFORMATION
  Report Type: 
  Country: None (occurrence: None)
  Receive Date: 20080825
  Receipt Date: 20080825
  Transmission Date: 20090109
  Serious: Yes (Other)
  Sender: FDA-Public Use
  Company Number: A0743866A

PATIENT
  Sex: Female

DRUGS (1)
  1. ALLI [Suspect]
     Indication: DRUG USE FOR UNKNOWN INDICATION
     Route: 048

REACTIONS (5)
  - GASTROINTESTINAL SOUNDS ABNORMAL [None]
  - HUNGER [None]
  - HYPERPHAGIA [None]
  - POLLAKIURIA [None]
  - SHOCK [None]
